FAERS Safety Report 19217082 (Version 1)
Quarter: 2021Q2

REPORT INFORMATION
  Report Type: Spontaneous
  Country: TW (occurrence: TW)
  Receive Date: 20210505
  Receipt Date: 20210505
  Transmission Date: 20210717
  Serious: Yes (Other)
  Sender: FDA-Public Use
  Company Number: TW-SUN PHARMACEUTICAL INDUSTRIES LTD-2021RR-294693

PATIENT
  Age: 65 Year
  Sex: Female
  Weight: 62 kg

DRUGS (10)
  1. PACLITAXEL. [Suspect]
     Active Substance: PACLITAXEL
     Indication: LUNG ADENOCARCINOMA
     Dosage: THREE CYCLES OF FULL?DOSE
     Route: 065
     Dates: start: 20090720, end: 20090921
  2. GEFITINIB. [Suspect]
     Active Substance: GEFITINIB
     Indication: LUNG ADENOCARCINOMA
     Dosage: SECOND LINE THERAPY
     Route: 065
     Dates: start: 20091102
  3. GEMCITABINE. [Suspect]
     Active Substance: GEMCITABINE
     Indication: LUNG ADENOCARCINOMA
     Dosage: 4TH CYCLE
     Route: 065
  4. CISPLATIN. [Suspect]
     Active Substance: CISPLATIN
     Indication: LUNG ADENOCARCINOMA
     Dosage: THREE CYCLES OF FULL?DOSE
     Route: 065
     Dates: start: 20090720, end: 20090921
  5. CISPLATIN. [Suspect]
     Active Substance: CISPLATIN
     Indication: LUNG ADENOCARCINOMA
     Dosage: 4TH CYCLE
     Route: 065
  6. GEFITINIB. [Suspect]
     Active Substance: GEFITINIB
     Indication: EGFR GENE MUTATION
  7. TOPOTECAN [Concomitant]
     Active Substance: TOPOTECAN HYDROCHLORIDE
     Indication: DISEASE RECURRENCE
     Dosage: 4 MILLIGRAM/SQ. METER, SIX WEEKLY CYCLES
     Route: 065
     Dates: start: 20140421, end: 20140808
  8. PAMIDRONATE [Suspect]
     Active Substance: PAMIDRONATE DISODIUM
     Indication: LUNG ADENOCARCINOMA
     Dosage: UP TO 25 CYCLES OF 4 WEEKLY
     Route: 065
     Dates: start: 20091019, end: 20110905
  9. CISPLATIN. [Suspect]
     Active Substance: CISPLATIN
     Indication: SMALL CELL CARCINOMA
     Dosage: FOUR CYCLES
     Route: 065
     Dates: start: 20130506, end: 20130711
  10. ETOPOSIDE. [Suspect]
     Active Substance: ETOPOSIDE
     Indication: SMALL CELL CARCINOMA
     Dosage: FOUR CYCLES
     Route: 065
     Dates: start: 20130506, end: 20130711

REACTIONS (6)
  - Neuropathy peripheral [Unknown]
  - Dermatitis acneiform [Unknown]
  - Disease recurrence [Unknown]
  - Paronychia [Unknown]
  - Diarrhoea [Unknown]
  - Small cell carcinoma [Unknown]
